FAERS Safety Report 16454554 (Version 1)
Quarter: 2019Q2

REPORT INFORMATION
  Report Type: Spontaneous
  Country: NL (occurrence: NL)
  Receive Date: 20190620
  Receipt Date: 20190620
  Transmission Date: 20190711
  Serious: Yes (Hospitalization)
  Sender: FDA-Public Use
  Company Number: NL-SUN PHARMACEUTICAL INDUSTRIES LTD-2019RR-210869

PATIENT
  Sex: Male
  Weight: 82 kg

DRUGS (5)
  1. METOPROLOLMETOPROLOL TABLET   25MG [Concomitant]
     Indication: PRODUCT USED FOR UNKNOWN INDICATION
     Dosage: ()
     Route: 065
  2. CLOPIDOGRELCLOPIDOGREL TABLET   75MG [Concomitant]
     Indication: PRODUCT USED FOR UNKNOWN INDICATION
     Dosage: ()
     Route: 065
  3. FENPROCOUMONFENPROCOUMON TABLET 3MG [Concomitant]
     Indication: PRODUCT USED FOR UNKNOWN INDICATION
     Dosage: ()
     Route: 065
  4. ATORVASTATIN [Suspect]
     Active Substance: ATORVASTATIN
     Indication: MYOCARDIAL INFARCTION
     Dosage: 1 DOSAGE FORM, DAILY
     Route: 050
     Dates: start: 20180715, end: 20190416
  5. PERINDOPRILPERINDOPRIL TABLET 2MG (ERBUMINE) [Concomitant]
     Indication: PRODUCT USED FOR UNKNOWN INDICATION
     Dosage: ()
     Route: 065

REACTIONS (8)
  - Gynaecomastia [Not Recovered/Not Resolved]
  - Petechiae [Recovered/Resolved]
  - Myalgia [Recovered/Resolved]
  - Pruritus [Recovered/Resolved]
  - Arthralgia [Recovered/Resolved]
  - Liver iron concentration increased [Unknown]
  - Insomnia [Recovered/Resolved]
  - Haemorrhage [Unknown]
